FAERS Safety Report 20831869 (Version 1)
Quarter: 2022Q2

REPORT INFORMATION
  Report Type: Spontaneous
  Country: US (occurrence: US)
  Receive Date: 20220516
  Receipt Date: 20220516
  Transmission Date: 20220721
  Serious: No
  Sender: FDA-Public Use
  Company Number: US-ELI_LILLY_AND_COMPANY-US202205005987

PATIENT
  Age: 28 Year
  Sex: Female

DRUGS (2)
  1. TALTZ [Suspect]
     Active Substance: IXEKIZUMAB
     Indication: Psoriasis
     Dosage: 80 MG, OTHER (INITIAL DOSE)
     Route: 065
     Dates: start: 20220513
  2. TALTZ [Suspect]
     Active Substance: IXEKIZUMAB
     Indication: Psoriatic arthropathy

REACTIONS (6)
  - Dizziness [Unknown]
  - Vomiting [Unknown]
  - Hyperhidrosis [Unknown]
  - Underdose [Unknown]
  - Injection site swelling [Unknown]
  - Nausea [Unknown]

NARRATIVE: CASE EVENT DATE: 20220513
